FAERS Safety Report 7369471-5 (Version None)
Quarter: 2011Q1

REPORT INFORMATION
  Report Type: 
  Country: None (occurrence: None)
  Receive Date: 20110323
  Receipt Date: 20110308
  Transmission Date: 20110831
  Serious: Yes (Other)
  Sender: FDA-Public Use
  Company Number: PHHY2011US19405

PATIENT
  Sex: Female

DRUGS (6)
  1. CALCIUM [Concomitant]
  2. RECLAST [Suspect]
     Dosage: UNK
     Dates: start: 20100215
  3. TUMS [Concomitant]
  4. AMLODIPINE [Concomitant]
  5. VITAMIN D [Concomitant]
  6. EVISTA [Concomitant]

REACTIONS (3)
  - ARTHRITIS [None]
  - CYST [None]
  - ARTHRALGIA [None]
